FAERS Safety Report 18539457 (Version 1)
Quarter: 2020Q4

REPORT INFORMATION
  Report Type: Spontaneous
  Country: US (occurrence: US)
  Receive Date: 20201124
  Receipt Date: 20201124
  Transmission Date: 20210114
  Serious: No
  Sender: FDA-Public Use
  Company Number: US-KERYX BIOPHARMACEUTICALS INC.-2020US006255

PATIENT
  Sex: Male

DRUGS (3)
  1. AURYXIA [Suspect]
     Active Substance: TETRAFERRIC TRICITRATE DECAHYDRATE
     Indication: HYPERPHOSPHATAEMIA
     Dosage: 12 GRAM (TABLETS), QD
     Route: 048
  2. AURYXIA [Suspect]
     Active Substance: TETRAFERRIC TRICITRATE DECAHYDRATE
     Dosage: 12 GRAM (TABLETS), QD
     Route: 048
  3. AURYXIA [Suspect]
     Active Substance: TETRAFERRIC TRICITRATE DECAHYDRATE
     Dosage: 15 TO 16 GRAM (TABLETS), QD
     Route: 048

REACTIONS (4)
  - Intentional overdose [Unknown]
  - Transferrin saturation increased [Not Recovered/Not Resolved]
  - Drug ineffective [Recovered/Resolved]
  - Serum ferritin increased [Not Recovered/Not Resolved]
